FAERS Safety Report 9480893 (Version 1)
Quarter: 2013Q3

REPORT INFORMATION
  Report Type: Spontaneous
  Country: US (occurrence: US)
  Receive Date: 20130828
  Receipt Date: 20130828
  Transmission Date: 20140515
  Serious: Yes (Other)
  Sender: FDA-Public Use
  Company Number: US-AMGEN-KDL136296

PATIENT
  Age: 73 Year
  Sex: Female

DRUGS (3)
  1. ENBREL [Suspect]
     Indication: RHEUMATOID ARTHRITIS
     Dosage: 50 MG, QWK
     Route: 058
     Dates: start: 20040401
  2. METHOTREXATE [Concomitant]
     Dosage: 2.5 MG, QD
     Route: 048
     Dates: start: 1995
  3. SULFASALAZINE [Concomitant]
     Dosage: 500 MG, QOD
     Route: 048
     Dates: start: 1985

REACTIONS (2)
  - Lung neoplasm [Unknown]
  - Cough [Unknown]
